FAERS Safety Report 7335988-2 (Version None)
Quarter: 2011Q1

REPORT INFORMATION
  Report Type: 
  Country: None (occurrence: None)
  Receive Date: 20110228
  Receipt Date: 20110216
  Transmission Date: 20110831
  Serious: Yes (Life-Threatening, Hospitalization)
  Sender: FDA-Public Use
  Company Number: 2010SP059292

PATIENT
  Age: 86 Year
  Sex: Male
  Weight: 81.65 kg

DRUGS (18)
  1. AMLODIPINE [Concomitant]
  2. METFORMIN HCL [Concomitant]
  3. OMEPRAZOLE [Concomitant]
  4. DIAZEPAM [Concomitant]
  5. GLYBURIDE [Concomitant]
  6. TRIATEC-30 [Concomitant]
  7. NITRO-DUR [Concomitant]
  8. RAMIPRIL [Concomitant]
  9. ASPIRIN [Concomitant]
  10. BISOPROLOL [Concomitant]
  11. AERIUS (DESLORATADINE /01398501/) [Suspect]
     Indication: RASH
     Dosage: 5 MG; QD; PO
     Route: 048
     Dates: start: 20101026, end: 20101029
  12. AERIUS (DESLORATADINE /01398501/) [Suspect]
     Indication: PRURITUS
     Dosage: 5 MG; QD; PO
     Route: 048
     Dates: start: 20101026, end: 20101029
  13. NITRO /00003201/ [Concomitant]
  14. HYDROCHLOROTHIAZIDE [Concomitant]
  15. COZAAR [Concomitant]
  16. PREDNISONE TAB [Concomitant]
  17. FLOMAX [Concomitant]
  18. SIMVASTATIN [Concomitant]

REACTIONS (3)
  - CHEST PAIN [None]
  - ATRIAL FIBRILLATION [None]
  - DYSPNOEA [None]
